FAERS Safety Report 8462462-2 (Version None)
Quarter: 2012Q2

REPORT INFORMATION
  Report Type: 
  Country: None (occurrence: None)
  Receive Date: 20120625
  Receipt Date: 20120613
  Transmission Date: 20120825
  Serious: Yes (Hospitalization, Other)
  Sender: FDA-Public Use
  Company Number: FR-ELI_LILLY_AND_COMPANY-FR201206004051

PATIENT
  Sex: Male

DRUGS (9)
  1. PLAVIX [Concomitant]
     Dosage: 75 MG, UNK
  2. SECTRAL [Concomitant]
     Dosage: 200 MG, UNK
  3. ALIMTA [Suspect]
     Indication: LUNG CANCER METASTATIC
     Dosage: 915 MG EVERY 21 DAYS
     Route: 042
     Dates: start: 20120426, end: 20120426
  4. PAROXETINE [Concomitant]
     Dosage: 20 MG, QD
  5. PRAVASTATIN [Concomitant]
     Dosage: 40 MG, UNK
  6. CISPLATIN [Concomitant]
     Indication: LUNG CANCER METASTATIC
     Dosage: 137 MG/KG EVERY 21 DAYS
     Dates: start: 20120426, end: 20120426
  7. CANDESARTAN CILEXETIL AND HYDROCHLOROTHIAZIDE [Concomitant]
     Dosage: 1 DF, QD
  8. NEXIUM [Concomitant]
     Dosage: 20 MG, QD
  9. EZETIMIBE [Concomitant]
     Dosage: 10 MG, QD

REACTIONS (10)
  - URINARY TRACT INFECTION [None]
  - ADRENAL INSUFFICIENCY [None]
  - ANAEMIA [None]
  - INFUSION SITE EXTRAVASATION [None]
  - RENAL FAILURE ACUTE [None]
  - METABOLIC ACIDOSIS [None]
  - CATHETER PLACEMENT [None]
  - LEUKOPENIA [None]
  - SOMNOLENCE [None]
  - MYOCLONUS [None]
